FAERS Safety Report 23238280 (Version 1)
Quarter: 2023Q4

REPORT INFORMATION
  Report Type: Spontaneous
  Country: GB (occurrence: GB)
  Receive Date: 20231129
  Receipt Date: 20231129
  Transmission Date: 20240110
  Serious: Yes (Other)
  Sender: FDA-Public Use
  Company Number: None

PATIENT

DRUGS (2)
  1. ORLISTAT [Suspect]
     Active Substance: ORLISTAT
     Indication: Product used for unknown indication
     Dosage: 120 MG (TAKE ONE CAPSULE IMMEDIATELY BEFORE, DURING, OR)
     Dates: start: 20231025
  2. TRIMOVATE (CLOBETASONE BUTYRATE + NYSTATIN + OXYTETRACYCLINE CALCIUM) [Concomitant]
     Indication: Product used for unknown indication
     Dosage: UNK UNK, BID (FOR 2 WEEKS)
     Dates: start: 20230911, end: 20230918

REACTIONS (1)
  - Rectal haemorrhage [Recovering/Resolving]
